FAERS Safety Report 11114612 (Version 3)
Quarter: 2015Q2

REPORT INFORMATION
  Report Type: Spontaneous
  Country: JP (occurrence: JP)
  Receive Date: 20150515
  Receipt Date: 20150526
  Transmission Date: 20150821
  Serious: Yes (Life-Threatening, Hospitalization)
  Sender: FDA-Public Use
  Company Number: JP-BEH-2015051154

PATIENT
  Age: 85 Year
  Sex: Male
  Weight: 51 kg

DRUGS (13)
  1. IRRADIATED PLATELET CONCENTRATE [Concomitant]
     Dates: start: 20150409
  2. SEKIJUJI ALBUMIN 5% [Concomitant]
     Dates: start: 20150409
  3. IRRADIATED RED BLOOD CELLS [Concomitant]
     Dates: start: 20150327
  4. FRESH FROZEN PLASMA [Concomitant]
     Active Substance: HUMAN PLASMA
     Dates: start: 20150410
  5. VERAPAMIL HYDROCHLORIDE. [Concomitant]
     Active Substance: VERAPAMIL HYDROCHLORIDE
     Route: 048
  6. IRRADIATED RED BLOOD CELLS [Concomitant]
     Dates: start: 20150402
  7. IRRADIATED RED BLOOD CELLS [Concomitant]
     Dates: start: 20150427
  8. ALBUMINAR 25% [Suspect]
     Active Substance: ALBUMIN (HUMAN)
     Indication: HYPOALBUMINAEMIA
     Dosage: PERIPHERAL INTRAVENOUS, INJECTION 12.5G/50 ML
     Route: 041
     Dates: start: 20150501, end: 20150501
  9. LANSOPRAZOLE. [Concomitant]
     Active Substance: LANSOPRAZOLE
     Route: 048
  10. IRRADIATED PLATELET CONCENTRATE [Concomitant]
     Dates: start: 20150410
  11. SEROQUEL [Concomitant]
     Active Substance: QUETIAPINE FUMARATE
     Dosage: TABLETS
     Route: 048
  12. IRRADIATED RED BLOOD CELLS [Concomitant]
     Dates: start: 20150430
  13. FRESH FROZEN PLASMA [Concomitant]
     Active Substance: HUMAN PLASMA
     Dates: start: 20150409

REACTIONS (8)
  - Tachycardia [Recovered/Resolved]
  - Generalised erythema [Recovered/Resolved]
  - Anaphylactic reaction [Recovered/Resolved]
  - Flushing [Recovered/Resolved]
  - Dyspnoea [Unknown]
  - Wheezing [Recovered/Resolved]
  - Pruritus [Unknown]
  - Asthma [Recovered/Resolved]

NARRATIVE: CASE EVENT DATE: 20150501
